FAERS Safety Report 6795581-7 (Version None)
Quarter: 2010Q2

REPORT INFORMATION
  Report Type: 
  Country: None (occurrence: None)
  Receive Date: 20100625
  Receipt Date: 20100615
  Transmission Date: 20101027
  Serious: Yes (Hospitalization)
  Sender: FDA-Public Use
  Company Number: DE-ABBOTT-10P-062-0642331-00

PATIENT
  Sex: Female

DRUGS (4)
  1. HUMIRA [Suspect]
     Indication: ANKYLOSING SPONDYLITIS
     Dates: start: 20080401, end: 20100419
  2. HUMIRA [Suspect]
     Indication: PSORIATIC ARTHROPATHY
  3. DELIX [Concomitant]
     Indication: HYPERTENSION
     Dates: start: 20100101
  4. GLUCOCORTICOIDS [Concomitant]
     Indication: ANKYLOSING SPONDYLITIS
     Dates: start: 20100501

REACTIONS (4)
  - ANKYLOSING SPONDYLITIS [None]
  - ARTHRALGIA [None]
  - HYPERTENSION [None]
  - LYMPHADENOPATHY [None]
